FAERS Safety Report 8244848-4 (Version None)
Quarter: 2012Q1

REPORT INFORMATION
  Report Type: 
  Country: None (occurrence: None)
  Receive Date: 20120329
  Receipt Date: 20110627
  Transmission Date: 20120608
  Serious: No
  Sender: FDA-Public Use
  Company Number: US-MYLANLABS-2011S1012320

PATIENT
  Age: 70 Year
  Sex: Female

DRUGS (9)
  1. COUMADIN [Concomitant]
     Indication: ATRIAL FIBRILLATION
  2. ZOLPIDEM [Concomitant]
     Indication: INSOMNIA
  3. KLONOPIN [Concomitant]
     Indication: INSOMNIA
  4. PREMARIN [Concomitant]
  5. FENTANYL-100 [Suspect]
     Indication: PAIN IN EXTREMITY
     Dosage: Q48 HOUR
     Route: 062
     Dates: start: 20110609
  6. FENTANYL-100 [Suspect]
     Indication: INTERVERTEBRAL DISC DEGENERATION
     Dosage: Q48 HOUR
     Route: 062
     Dates: start: 20110609
  7. SOTALOL HCL [Concomitant]
     Indication: ATRIAL FIBRILLATION
  8. COUMADIN [Concomitant]
  9. FENTANYL-100 [Suspect]
     Indication: FIBROMYALGIA
     Dosage: Q48 HOUR
     Route: 062
     Dates: start: 20110609

REACTIONS (7)
  - PAIN IN EXTREMITY [None]
  - FEELING COLD [None]
  - OEDEMA PERIPHERAL [None]
  - HEART RATE INCREASED [None]
  - DRUG INEFFECTIVE [None]
  - DYSPNOEA [None]
  - CHILLS [None]
